FAERS Safety Report 8494502-9 (Version None)
Quarter: 2012Q3

REPORT INFORMATION
  Report Type: 
  Country: None (occurrence: None)
  Receive Date: 20120709
  Receipt Date: 20120507
  Transmission Date: 20120928
  Serious: No
  Sender: FDA-Public Use
  Company Number: US-COVIDIEN/TYCO HEALTHCARE/MALLINCKRODT-T201201686

PATIENT
  Sex: Male

DRUGS (3)
  1. LISINOPRIL [Concomitant]
     Dosage: UNK
  2. VITAMINS                           /90003601/ [Concomitant]
     Dosage: UNK
  3. OXYCODONE/ACETAMINOPHEN [Suspect]
     Indication: BACK PAIN
     Dosage: UNK, PRN
     Route: 048
     Dates: start: 20110101

REACTIONS (1)
  - DRUG SCREEN NEGATIVE [None]
